FAERS Safety Report 6271698-0 (Version None)
Quarter: 2009Q3

REPORT INFORMATION
  Report Type: 
  Country: None (occurrence: None)
  Receive Date: 20090717
  Receipt Date: 20090706
  Transmission Date: 20100115
  Serious: Yes (Hospitalization, Other)
  Sender: FDA-Public Use
  Company Number: BR-ROCHE-535507

PATIENT
  Sex: Male
  Weight: 45.5 kg

DRUGS (5)
  1. VALGANCICLOVIR HCL [Suspect]
     Dosage: 30 MIN AFTER EACH MEAL DAYS 1-100 (DOSE AS PER PROTOCOL)
     Route: 048
     Dates: start: 20071123, end: 20071204
  2. VALGANCICLOVIR HCL [Suspect]
     Dosage: DAILY, 30 MIN AFTER EACH MEAL ON DAYS 101-200 (AS PER PROTOCOL)
     Route: 048
  3. TACROLIMUS [Concomitant]
     Dates: start: 20071107
  4. PREDNISONE TAB [Concomitant]
     Dates: start: 20070821
  5. MYCOPHENOLATE SODIUM [Concomitant]
     Dates: start: 20070701, end: 20071203

REACTIONS (2)
  - CYTOMEGALOVIRUS INFECTION [None]
  - DRUG INEFFECTIVE [None]
